FAERS Safety Report 9394549 (Version 1)
Quarter: 2013Q3

REPORT INFORMATION
  Report Type: Spontaneous
  Country: US (occurrence: None)
  Receive Date: 20130709
  Receipt Date: 20130709
  Transmission Date: 20140516
  Serious: Yes (Other)
  Sender: FDA-Public Use
  Company Number: None

PATIENT
  Age: 24 None
  Sex: Female
  Weight: 58 kg

DRUGS (1)
  1. FRESENIUS SALINE [Suspect]

REACTIONS (2)
  - Chest pain [None]
  - Device related infection [None]
